FAERS Safety Report 6216105-9 (Version None)
Quarter: 2009Q2

REPORT INFORMATION
  Report Type: 
  Country: None (occurrence: None)
  Receive Date: 20090603
  Receipt Date: 20090603
  Transmission Date: 20091009
  Serious: Yes (Other)
  Sender: FDA-Public Use
  Company Number: None

PATIENT
  Age: 80 Year
  Sex: Male
  Weight: 90.7194 kg

DRUGS (2)
  1. PREDNISONE [Suspect]
     Indication: BRONCHITIS
     Dosage: 444 4332211 DAILY
     Dates: start: 20090424, end: 20090503
  2. LEVAQUIN [Suspect]
     Indication: BRONCHITIS
     Dosage: 1 DAILY
     Dates: start: 20090424, end: 20090504

REACTIONS (5)
  - BACK PAIN [None]
  - PAIN IN EXTREMITY [None]
  - RENAL PAIN [None]
  - TENDON PAIN [None]
  - TINNITUS [None]
